FAERS Safety Report 6631884-4 (Version None)
Quarter: 2010Q1

REPORT INFORMATION
  Report Type: 
  Country: None (occurrence: None)
  Receive Date: 20100312
  Receipt Date: 20100302
  Transmission Date: 20100710
  Serious: Yes (Other)
  Sender: FDA-Public Use
  Company Number: US-ROCHE-688796

PATIENT
  Sex: Female
  Weight: 74.4 kg

DRUGS (4)
  1. BONIVA [Suspect]
     Route: 048
     Dates: start: 20090601, end: 20091201
  2. GEMFIBROZIL [Concomitant]
     Dosage: DRUG REPORTED AS GENFIBROCIL
  3. METOPROLOL TARTRATE [Concomitant]
  4. DILTIAZEM HCL [Concomitant]
     Dosage: DRUG REPORTED AS DILITAZEN

REACTIONS (4)
  - BLOOD GLUCOSE INCREASED [None]
  - PHOTOPSIA [None]
  - VISION BLURRED [None]
  - VISUAL ACUITY REDUCED [None]
